FAERS Safety Report 6919235-9 (Version None)
Quarter: 2010Q3

REPORT INFORMATION
  Report Type: 
  Country: None (occurrence: None)
  Receive Date: 20100811
  Receipt Date: 20100805
  Transmission Date: 20110219
  Serious: Yes (Hospitalization)
  Sender: FDA-Public Use
  Company Number: AU-JNJFOC-20100706924

PATIENT
  Sex: Male

DRUGS (9)
  1. REMINYL [Suspect]
     Indication: DEMENTIA ALZHEIMER'S TYPE
     Route: 065
  2. REMINYL [Suspect]
     Route: 065
  3. ASPIRIN [Concomitant]
     Route: 065
  4. ROSUVASTATIN [Concomitant]
     Route: 065
  5. PERINDOPRIL [Concomitant]
     Route: 065
  6. QUETIAPINE [Concomitant]
     Route: 065
  7. OXAZEPAM [Concomitant]
     Route: 065
  8. GINKGO BILOBA [Concomitant]
     Route: 065
  9. TOCOPHEROL CONCENTRATE CAP [Concomitant]
     Route: 065

REACTIONS (3)
  - BLOOD PRESSURE FLUCTUATION [None]
  - SINUS BRADYCARDIA [None]
  - SYNCOPE [None]
